FAERS Safety Report 9852166 (Version 2)
Quarter: 2014Q1

REPORT INFORMATION
  Report Type: Report from Study
  Country: JP (occurrence: JP)
  Receive Date: 20140129
  Receipt Date: 20140129
  Transmission Date: 20141002
  Serious: Yes (Hospitalization, Other)
  Sender: FDA-Public Use
  Company Number: JP-009507513-1305JPN007979

PATIENT
  Age: 36 Year
  Sex: Female
  Weight: 47 kg

DRUGS (5)
  1. GANIRELIX ACETATE [Suspect]
     Indication: PREVENTION OF PREMATURE OVULATION
     Dosage: 0.25 MG, QD
     Route: 058
     Dates: start: 20120311, end: 20120313
  2. FOLLISTIM INJECTION 150 [Suspect]
     Indication: IN VITRO FERTILISATION
     Dosage: TOTAL DAILY DOSE: 200(UNDER 1000 UNIT),QD
     Route: 058
     Dates: start: 20120306, end: 20120308
  3. MENOTROPINS [Concomitant]
     Indication: IN VITRO FERTILISATION
     Dosage: TOTAL DAILY DOSE: 225(UNDER 1000 UNIT),QD
     Route: 030
     Dates: start: 20120309, end: 20120313
  4. MENOTROPINS [Concomitant]
     Dosage: TOATAL DAILY DOSE:150(UNDER1000UNIT),QD
     Route: 030
     Dates: start: 20120314, end: 20120314
  5. GONADOTROPIN, CHORIONIC [Concomitant]
     Indication: OVULATION INDUCTION
     Dosage: TOTAL DAILY DOSE: 5(THOUSAND-MILLION UNIT),QD
     Route: 030
     Dates: start: 20120314, end: 20120314

REACTIONS (1)
  - Foetal death [Recovered/Resolved]
